FAERS Safety Report 25346578 (Version 1)
Quarter: 2025Q2

REPORT INFORMATION
  Report Type: Spontaneous
  Country: US (occurrence: None)
  Receive Date: 20250520
  Receipt Date: 20250520
  Transmission Date: 20250717
  Serious: Yes (Hospitalization)
  Sender: FDA-CTU
  Company Number: None

PATIENT
  Sex: Female

DRUGS (1)
  1. DIPHENHYDRAMINE HYDROCHLORIDE [Suspect]
     Active Substance: DIPHENHYDRAMINE HYDROCHLORIDE
     Indication: Angioedema
     Route: 042
     Dates: start: 20240506

REACTIONS (6)
  - Pharyngeal swelling [None]
  - Swelling [None]
  - Eye swelling [None]
  - Swollen tongue [None]
  - Device issue [None]
  - Swelling [None]
